FAERS Safety Report 7539420-5 (Version None)
Quarter: 2011Q2

REPORT INFORMATION
  Report Type: 
  Country: None (occurrence: None)
  Receive Date: 20110609
  Receipt Date: 20110609
  Transmission Date: 20111010
  Serious: No
  Sender: FDA-Public Use
  Company Number: None

PATIENT
  Sex: Female
  Weight: 63.5036 kg

DRUGS (1)
  1. ALDARA [Suspect]
     Indication: ACTINIC KERATOSIS
     Dosage: 3X/WEEK CUTANEOUS/TOPICAL
     Route: 003
     Dates: start: 20050512, end: 20050607

REACTIONS (1)
  - SKIN DEPIGMENTATION [None]
